FAERS Safety Report 19150298 (Version 1)
Quarter: 2021Q2

REPORT INFORMATION
  Report Type: Spontaneous
  Country: US (occurrence: US)
  Receive Date: 20210418
  Receipt Date: 20210418
  Transmission Date: 20210717
  Serious: No
  Sender: FDA-Public Use
  Company Number: US-ELI_LILLY_AND_COMPANY-US202104007581

PATIENT
  Age: 64 Year
  Sex: Female

DRUGS (1)
  1. TRULICITY [Suspect]
     Active Substance: DULAGLUTIDE
     Indication: PRODUCT USED FOR UNKNOWN INDICATION
     Dosage: 0.75 MG, UNKNOWN
     Route: 065

REACTIONS (8)
  - Hypersensitivity [Unknown]
  - Abdominal pain upper [Unknown]
  - Dyspnoea [Unknown]
  - Vomiting [Unknown]
  - Malaise [Unknown]
  - Feeding disorder [Unknown]
  - Nausea [Unknown]
  - Lip swelling [Unknown]

NARRATIVE: CASE EVENT DATE: 20210401
